FAERS Safety Report 6538256-1 (Version None)
Quarter: 2010Q1

REPORT INFORMATION
  Report Type: 
  Country: None (occurrence: None)
  Receive Date: 20100112
  Receipt Date: 20100112
  Transmission Date: 20100710
  Serious: Yes (Hospitalization, Other)
  Sender: FDA-Public Use
  Company Number: None

PATIENT
  Age: 62 Year
  Weight: 53.5244 kg

DRUGS (1)
  1. MIRAPEX [Suspect]
     Indication: RESTLESS LEGS SYNDROME
     Dosage: VARIABLE INCREASING DOSAGE DAILY
     Dates: start: 20051101, end: 20060901

REACTIONS (2)
  - DRUG EFFECT DECREASED [None]
  - WOUND [None]
